FAERS Safety Report 20087184 (Version 1)
Quarter: 2021Q4

REPORT INFORMATION
  Report Type: Spontaneous
  Country: DE (occurrence: DE)
  Receive Date: 20211118
  Receipt Date: 20211118
  Transmission Date: 20220303
  Serious: Yes (Hospitalization)
  Sender: FDA-Public Use
  Company Number: DE-ADRED-07137-01

PATIENT
  Age: 73 Year
  Sex: Female

DRUGS (11)
  1. AZITHROMYCIN ANHYDROUS [Suspect]
     Active Substance: AZITHROMYCIN ANHYDROUS
     Indication: Infection
     Dosage: 500 MILLIGRAM, QD (3 TAGE LANG AZITHROMYCIN 500 MG; 0-1-0; EINGENOMMEN)
     Route: 048
  2. PERINDOPRIL ERBUMINE [Suspect]
     Active Substance: PERINDOPRIL ERBUMINE
     Indication: Product used for unknown indication
     Dosage: 4 MILLIGRAM, QD (4 MG, 1-0-0-0, TABLETTEN)
     Route: 048
  3. FENOTEROL HYDROBROMIDE\IPRATROPIUM BROMIDE [Concomitant]
     Active Substance: FENOTEROL HYDROBROMIDE\IPRATROPIUM BROMIDE
     Dosage: UNK UNK, PRN (BEI BEDARF, DOSIERAEROSOL)
     Route: 055
  4. TORSEMIDE [Concomitant]
     Active Substance: TORSEMIDE
     Dosage: 10 MILLIGRAM, QD (10 MG, 1-0-0-0, TABLETTEN)
     Route: 048
  5. ASPIRIN [Concomitant]
     Active Substance: ASPIRIN
     Dosage: 100 MILLIGRAM, QD (100 MG, 1-0-0-0, TABLETTEN)
     Route: 048
  6. HYDROXYCHLOROQUINE [Concomitant]
     Active Substance: HYDROXYCHLOROQUINE
     Dosage: 200 MILLIGRAM, BID (200 MG, 1-0-1-0, TABLETTEN)
     Route: 048
  7. ALLOPURINOL [Concomitant]
     Active Substance: ALLOPURINOL
     Dosage: 150 MILLIGRAM, QD (300 MG, 0.5-0-0-0, TABLETTEN)
     Route: 048
  8. SIMVASTATIN [Concomitant]
     Active Substance: SIMVASTATIN
     Dosage: 40 MILLIGRAM, QD (40 MG, 0-0-1-0, TABLETTEN)
     Route: 048
  9. NITROLINGUAL [Concomitant]
     Active Substance: NITROGLYCERIN
     Dosage: UNK UNK, PRN (BEI BEDARF, SUBLINGUAL SPRAY)
     Route: 060
  10. CHOLECALCIFEROL [Concomitant]
     Active Substance: CHOLECALCIFEROL
     Dosage: 20000 INTERNATIONAL UNIT, QW (20000 IE, EINMAL PRO WOCHE, KAPSELN)
     Route: 048
  11. METOPROLOL [Concomitant]
     Active Substance: METOPROLOL
     Dosage: 47.5 MILLIGRAM, BID (47.5 MG, 1-0-1-0, RETARD-TABLETTEN)
     Route: 048

REACTIONS (3)
  - Ventricular extrasystoles [Unknown]
  - Dyspnoea exertional [Unknown]
  - Swollen tongue [Unknown]

NARRATIVE: CASE EVENT DATE: 20210628
